FAERS Safety Report 21903376 (Version 1)
Quarter: 2023Q1

REPORT INFORMATION
  Report Type: Spontaneous
  Country: US (occurrence: US)
  Receive Date: 20230124
  Receipt Date: 20230124
  Transmission Date: 20230418
  Serious: No
  Sender: FDA-Public Use
  Company Number: US-COSETTE-CP2023US000007

PATIENT
  Age: 80 Year
  Sex: Male
  Weight: 185 kg

DRUGS (1)
  1. WELCHOL [Suspect]
     Active Substance: COLESEVELAM HYDROCHLORIDE
     Indication: Blood cholesterol
     Route: 048

REACTIONS (5)
  - Taste disorder [Unknown]
  - Product taste abnormal [Unknown]
  - Product residue present [Unknown]
  - Product solubility abnormal [Unknown]
  - Product reconstitution quality issue [Unknown]
